FAERS Safety Report 12695579 (Version 1)
Quarter: 2016Q3

REPORT INFORMATION
  Report Type: Spontaneous
  Country: None (occurrence: US)
  Receive Date: 20160829
  Receipt Date: 20160829
  Transmission Date: 20161109
  Serious: No
  Sender: FDA-Public Use
  Company Number: US-KALEO, INC-2015SA179304

PATIENT
  Age: 19 Year
  Sex: Male
  Weight: 72.64 kg

DRUGS (3)
  1. AUVI-Q [Suspect]
     Active Substance: EPINEPHRINE
     Indication: ANAPHYLACTIC REACTION
     Dosage: 0.3 MG, ONCE, IM OR SC
     Dates: start: 2013, end: 201506
  2. LAMICTIL [Concomitant]
     Route: 048
  3. LEXAPRO [Concomitant]
     Active Substance: ESCITALOPRAM OXALATE
     Route: 048

REACTIONS (3)
  - Tachycardia [None]
  - Vomiting [None]
  - Drug ineffective [Unknown]

NARRATIVE: CASE EVENT DATE: 201506
